FAERS Safety Report 7967195-4 (Version None)
Quarter: 2011Q4

REPORT INFORMATION
  Report Type: 
  Country: None (occurrence: None)
  Receive Date: 20111209
  Receipt Date: 20111205
  Transmission Date: 20120403
  Serious: Yes (Hospitalization, Other)
  Sender: FDA-Public Use
  Company Number: US-PFIZER INC-2011151548

PATIENT
  Sex: Female

DRUGS (16)
  1. EFFEXOR [Concomitant]
     Indication: ANXIETY
  2. EFFEXOR [Concomitant]
     Indication: DEPRESSION
     Dosage: UNK
     Dates: start: 20070225
  3. NORVASC [Concomitant]
     Indication: PAIN
  4. SYNTHROID [Concomitant]
     Indication: THYROID DISORDER
     Dosage: UNK
     Dates: start: 19970925
  5. AMBIEN [Concomitant]
     Indication: SLEEP DISORDER
     Dosage: UNK
     Dates: start: 20060925, end: 20090101
  6. CHANTIX [Suspect]
     Indication: CHRONIC OBSTRUCTIVE PULMONARY DISEASE
  7. CELEBREX [Concomitant]
     Indication: RHEUMATOID ARTHRITIS
     Dosage: UNK
     Dates: start: 19970925
  8. ACIPHEX [Concomitant]
     Dosage: UNK
     Dates: start: 20020925, end: 20090101
  9. SEROQUEL [Concomitant]
     Indication: PAIN
  10. ZANAFLEX [Concomitant]
     Indication: MUSCLE RELAXANT THERAPY
     Dosage: UNK
     Dates: start: 20070325
  11. SEROQUEL [Concomitant]
     Indication: DEPRESSION
     Dosage: UNK
     Dates: start: 20070125
  12. NORVASC [Concomitant]
     Indication: DEPRESSION
     Dosage: UNK
     Dates: start: 20070225
  13. REQUIP [Concomitant]
     Indication: RESTLESS LEGS SYNDROME
     Dosage: UNK
     Dates: start: 20070325, end: 20080101
  14. IMITREX [Concomitant]
     Indication: MIGRAINE
     Dosage: AS NEEDED
     Dates: start: 20010925
  15. AXID [Concomitant]
     Dosage: UNK
     Dates: start: 20020925
  16. CHANTIX [Suspect]
     Indication: SMOKING CESSATION THERAPY
     Dosage: 1 TABLET TWICE A DAY
     Route: 048
     Dates: start: 20070601, end: 20090401

REACTIONS (3)
  - INTENTIONAL OVERDOSE [None]
  - DEPRESSION [None]
  - SUICIDE ATTEMPT [None]
